FAERS Safety Report 19689483 (Version 1)
Quarter: 2021Q3

REPORT INFORMATION
  Report Type: Report from Study
  Country: CA (occurrence: CA)
  Receive Date: 20210812
  Receipt Date: 20210812
  Transmission Date: 20211014
  Serious: Yes (Hospitalization)
  Sender: FDA-Public Use
  Company Number: CA-JNJFOC-20210815423

PATIENT
  Sex: Male

DRUGS (1)
  1. REMICADE [Suspect]
     Active Substance: INFLIXIMAB
     Indication: PRODUCT USED FOR UNKNOWN INDICATION
     Dosage: PATIENT RECEIVES LAST REMICADE TREATMENT 10 WEEKS AGO.?PATIENT RECEIVES INFUSION ON 06?AUG?2021.
     Route: 042

REACTIONS (2)
  - COVID-19 [Unknown]
  - Renal impairment [Unknown]
